FAERS Safety Report 13905964 (Version 1)
Quarter: 2017Q3

REPORT INFORMATION
  Report Type: Spontaneous
  Country: US (occurrence: US)
  Receive Date: 20170825
  Receipt Date: 20170825
  Transmission Date: 20171127
  Serious: Yes (Other)
  Sender: FDA-Public Use
  Company Number: None

PATIENT
  Sex: Male
  Weight: 21.8 kg

DRUGS (1)
  1. GENERIC CORTEF [Suspect]
     Active Substance: HYDROCORTISONE

REACTIONS (2)
  - Product substitution issue [None]
  - Abdominal discomfort [None]
